FAERS Safety Report 7585496-9 (Version None)
Quarter: 2011Q2

REPORT INFORMATION
  Report Type: 
  Country: None (occurrence: None)
  Receive Date: 20110531
  Receipt Date: 20100426
  Transmission Date: 20111010
  Serious: Yes (Other)
  Sender: FDA-Public Use
  Company Number: WAES 1004USA024163

PATIENT
  Age: 60 Year
  Sex: Female

DRUGS (3)
  1. NOVOLOG [Concomitant]
  2. SIMVASTATIN [Concomitant]
  3. JANUMET [Suspect]
     Indication: DIABETES MELLITUS
     Dosage: 1000MG/50 MG/BID/PO
     Route: 048

REACTIONS (1)
  - PANCREATITIS [None]
